FAERS Safety Report 6234553-8 (Version None)
Quarter: 2009Q2

REPORT INFORMATION
  Report Type: 
  Country: None (occurrence: None)
  Receive Date: 20090616
  Receipt Date: 20090616
  Transmission Date: 20091009
  Serious: Yes (Hospitalization)
  Sender: FDA-Public Use
  Company Number: None

PATIENT
  Age: 80 Year
  Sex: Male
  Weight: 54 kg

DRUGS (1)
  1. DIGOXIN [Suspect]
     Dosage: 0.125 MG EVERY DAY PO
     Route: 048
     Dates: start: 20080820, end: 20090603

REACTIONS (3)
  - BRADYCARDIA [None]
  - SEDATION [None]
  - SYNCOPE [None]
